FAERS Safety Report 9694999 (Version 3)
Quarter: 2013Q4

REPORT INFORMATION
  Report Type: Spontaneous
  Country: GB (occurrence: GB)
  Receive Date: 20131119
  Receipt Date: 20131230
  Transmission Date: 20140711
  Serious: Yes (Death)
  Sender: FDA-Public Use
  Company Number: GB-JNJFOC-20131107315

PATIENT
  Age: 20 Year
  Sex: Male

DRUGS (1)
  1. FENTANYL [Suspect]
     Indication: SUBSTANCE USE
     Route: 048
     Dates: start: 20120908, end: 20120908

REACTIONS (5)
  - Accidental overdose [Fatal]
  - Intentional drug misuse [Unknown]
  - Drug diversion [Unknown]
  - Drug abuse [Fatal]
  - Incorrect route of drug administration [Unknown]
